FAERS Safety Report 23661684 (Version 1)
Quarter: 2024Q1

REPORT INFORMATION
  Report Type: Spontaneous
  Country: CN (occurrence: CN)
  Receive Date: 20240322
  Receipt Date: 20240322
  Transmission Date: 20240410
  Serious: Yes (Hospitalization, Other)
  Sender: FDA-Public Use
  Company Number: None

PATIENT
  Age: 70 Year
  Sex: Male

DRUGS (5)
  1. BUPROPION HYDROCHLORIDE [Interacting]
     Active Substance: BUPROPION HYDROCHLORIDE
     Indication: Product used for unknown indication
     Dosage: 150 MG, ONCE PER DAY
     Dates: start: 2023
  2. PAROXETINE [Interacting]
     Active Substance: PAROXETINE
     Indication: Depression
     Dosage: UNK, UNK
     Dates: start: 2023, end: 2023
  3. PAROXETINE [Interacting]
     Active Substance: PAROXETINE
     Dosage: 40 MG, ONCE PER DAY
     Dates: start: 2023, end: 2023
  4. PAROXETINE [Interacting]
     Active Substance: PAROXETINE
     Dosage: 20 MG, ONCE PER DAY
     Dates: start: 2023
  5. CLONAZEPAM [Concomitant]
     Active Substance: CLONAZEPAM
     Indication: Product used for unknown indication
     Dosage: 2 MG, ONCE PER DAY
     Dates: start: 2023

REACTIONS (2)
  - Drug interaction [Recovered/Resolved]
  - Serotonin syndrome [Recovered/Resolved]

NARRATIVE: CASE EVENT DATE: 20230101
